FAERS Safety Report 21979561 (Version 1)
Quarter: 2023Q1

REPORT INFORMATION
  Report Type: Spontaneous
  Country: US (occurrence: None)
  Receive Date: 20230208
  Receipt Date: 20230208
  Transmission Date: 20230417
  Serious: No
  Sender: FDA-Public Use
  Company Number: None

PATIENT
  Age: 77 Year
  Sex: Female

DRUGS (1)
  1. LENALIDOMIDE [Suspect]
     Active Substance: LENALIDOMIDE
     Indication: Splenic marginal zone lymphoma
     Dosage: FREQUENCY : DAILY;?
     Route: 048
     Dates: start: 20221019, end: 20221212

REACTIONS (7)
  - Drug eruption [None]
  - Rash erythematous [None]
  - Rash pruritic [None]
  - Exfoliative rash [None]
  - Rash [None]
  - Rash [None]
  - Rash [None]

NARRATIVE: CASE EVENT DATE: 20221225
